FAERS Safety Report 24674951 (Version 1)
Quarter: 2024Q4

REPORT INFORMATION
  Report Type: Spontaneous
  Country: JP (occurrence: JP)
  Receive Date: 20241128
  Receipt Date: 20241128
  Transmission Date: 20250115
  Serious: Yes (Hospitalization)
  Sender: TEVA
  Company Number: JP-TEVA-VS-3268065

PATIENT
  Age: 65 Year
  Sex: Female

DRUGS (1)
  1. LANSOPRAZOLE [Suspect]
     Active Substance: LANSOPRAZOLE
     Indication: Product used for unknown indication
     Dosage: DOSAGE IS UNKNOWN, OD TABLET 15MG ^TAKEDA TEVA^
     Route: 048
     Dates: start: 202403, end: 202404

REACTIONS (1)
  - Toxic epidermal necrolysis [Unknown]
